FAERS Safety Report 9520821 (Version 1)
Quarter: 2013Q1

REPORT INFORMATION
  Report Type: Spontaneous
  Country: US (occurrence: None)
  Receive Date: 20130305
  Receipt Date: 20130305
  Transmission Date: 20140127
  Serious: Yes (Other)
  Sender: FDA-Public Use
  Company Number: 163-21880-11010440

PATIENT
  Age: 84 Year
  Sex: Female
  Weight: 70.76 kg

DRUGS (1)
  1. REVLIMID (LENALIDOMIDE) (CAPSULES) [Suspect]
     Indication: PLASMA CELL MYELOMA
     Dosage: 1-2 (5 MG) CAP, 1 CAP ALTERNATION WITH 2 CAP EOD
     Route: 048
     Dates: start: 20100126

REACTIONS (5)
  - Pneumonitis [None]
  - Diarrhoea [None]
  - Skin discolouration [None]
  - Respiratory tract infection [None]
  - Contusion [None]
